FAERS Safety Report 9190941 (Version 1)
Quarter: 2013Q1

REPORT INFORMATION
  Report Type: Spontaneous
  Country: US (occurrence: None)
  Receive Date: 20120703
  Receipt Date: 20120703
  Transmission Date: 20140127
  Serious: Yes (Other)
  Sender: FDA-Public Use
  Company Number: PHEH2012US007748

PATIENT
  Age: 19 Year
  Sex: Female

DRUGS (2)
  1. GILENYA (FTY)CAPSULE, 0.5 MG [Suspect]
     Indication: MULTIPLE SCLEROSIS
     Route: 048
     Dates: start: 20120316
  2. BUSPIRONE HYDROCHLORIDE (BUSPIRONE HYDROCHLORIDE) TABLET, 5MG [Concomitant]

REACTIONS (1)
  - Multiple sclerosis relapse [None]
